FAERS Safety Report 16483124 (Version 1)
Quarter: 2019Q2

REPORT INFORMATION
  Report Type: Spontaneous
  Country: US (occurrence: US)
  Receive Date: 20190627
  Receipt Date: 20190627
  Transmission Date: 20190711
  Serious: Yes (Hospitalization)
  Sender: FDA-Public Use
  Company Number: US-OCTA-WIL01219US

PATIENT
  Age: 30 Year
  Sex: Female
  Weight: 48.6 kg

DRUGS (1)
  1. WILATE - VON WILLEBRAND FACTOR/COAGULATION FACTOR VIII COMPLEX (HUMAN) [Suspect]
     Active Substance: HUMAN COAGULATION FACTOR VIII/VON WILLEBRAND FACTOR COMPLEX
     Indication: VON WILLEBRAND^S DISEASE
     Route: 042
     Dates: start: 20190613, end: 20190613

REACTIONS (6)
  - Erythema [Recovering/Resolving]
  - Musculoskeletal stiffness [Unknown]
  - Cyanosis [Unknown]
  - Flushing [Unknown]
  - Dizziness [Recovering/Resolving]
  - Retching [Recovering/Resolving]

NARRATIVE: CASE EVENT DATE: 20190613
